FAERS Safety Report 13485528 (Version 2)
Quarter: 2017Q2

REPORT INFORMATION
  Report Type: Spontaneous
  Country: US (occurrence: US)
  Receive Date: 20170426
  Receipt Date: 20170621
  Transmission Date: 20170830
  Serious: No
  Sender: FDA-Public Use
  Company Number: US-ELI_LILLY_AND_COMPANY-US201704005292

PATIENT
  Age: 11 Year
  Sex: Male

DRUGS (1)
  1. HUMATROPE [Suspect]
     Active Substance: SOMATROPIN
     Indication: GROWTH HORMONE DEFICIENCY
     Dosage: 1.8 MG, UNKNOWN
     Route: 058

REACTIONS (5)
  - Underdose [Unknown]
  - Injection site pain [Unknown]
  - Fatigue [Unknown]
  - Irritability [Unknown]
  - Underdose [Unknown]

NARRATIVE: CASE EVENT DATE: 20170413
